FAERS Safety Report 25343880 (Version 1)
Quarter: 2025Q2

REPORT INFORMATION
  Report Type: Spontaneous
  Country: US (occurrence: US)
  Receive Date: 20250521
  Receipt Date: 20250521
  Transmission Date: 20250716
  Serious: No
  Sender: SANOFI AVENTIS
  Company Number: US-SA-2025SA144371

PATIENT
  Age: 53 Year
  Sex: Female
  Weight: 75 kg

DRUGS (12)
  1. DUPIXENT [Suspect]
     Active Substance: DUPILUMAB
     Dosage: 300 MG, QOW
     Route: 058
  2. CLONAZEPAM [Concomitant]
     Active Substance: CLONAZEPAM
  3. BUPROPION [Concomitant]
     Active Substance: BUPROPION
  4. FLUOXETINE [Concomitant]
     Active Substance: FLUOXETINE HYDROCHLORIDE
  5. MUPIROCIN [Concomitant]
     Active Substance: MUPIROCIN
  6. AZITHROMYCIN [Concomitant]
     Active Substance: AZITHROMYCIN
  7. PROGESTERONE [Concomitant]
     Active Substance: PROGESTERONE
  8. OSELTAMIVIR PHOSPHATE [Concomitant]
     Active Substance: OSELTAMIVIR PHOSPHATE
  9. ESTRADIOL [Concomitant]
     Active Substance: ESTRADIOL
  10. OPZELURA [Concomitant]
     Active Substance: RUXOLITINIB PHOSPHATE
  11. AZELASTINE [Concomitant]
     Active Substance: AZELASTINE
  12. XHANCE [Concomitant]
     Active Substance: FLUTICASONE PROPIONATE

REACTIONS (2)
  - Pruritus [Unknown]
  - Sleep disorder [Unknown]

NARRATIVE: CASE EVENT DATE: 20250515
